FAERS Safety Report 15990307 (Version 1)
Quarter: 2019Q1

REPORT INFORMATION
  Report Type: Spontaneous
  Country: US (occurrence: US)
  Receive Date: 20190221
  Receipt Date: 20190221
  Transmission Date: 20190418
  Serious: No
  Sender: FDA-Public Use
  Company Number: US-ALLERGAN-1835016US

PATIENT
  Age: 67 Year
  Sex: Male
  Weight: 81.63 kg

DRUGS (1)
  1. FLUOROMETHOLONE, 0.1% [Suspect]
     Active Substance: FLUOROMETHOLONE
     Indication: DRY EYE
     Dosage: 2 GTT, BID
     Route: 047
     Dates: start: 20180704, end: 20180708

REACTIONS (2)
  - Off label use [Unknown]
  - Product container issue [Unknown]

NARRATIVE: CASE EVENT DATE: 20180707
